FAERS Safety Report 21070681 (Version 1)
Quarter: 2022Q3

REPORT INFORMATION
  Report Type: Spontaneous
  Country: FR (occurrence: FR)
  Receive Date: 20220712
  Receipt Date: 20220712
  Transmission Date: 20221027
  Serious: Yes (Hospitalization)
  Sender: FDA-Public Use
  Company Number: None

PATIENT
  Age: 22 Year
  Sex: Male

DRUGS (8)
  1. XANAX [Suspect]
     Active Substance: ALPRAZOLAM
     Dosage: 1 BLISTER 2 TO 3 TIMES WEEKLY
     Route: 048
  2. TRAMADOL HYDROCHLORIDE [Suspect]
     Active Substance: TRAMADOL HYDROCHLORIDE
     Dosage: 2-3 BLISTERS OF TRAMADOL WEEKLY WITH ONE BLISTER AT EACH INTAKE
     Route: 048
  3. COCAINE [Suspect]
     Active Substance: COCAINE
     Dosage: 1 G SNORTED A FEW TIMES MONTHLY
     Route: 045
  4. CANNABIS SATIVA SUBSP. INDICA TOP [Suspect]
     Active Substance: CANNABIS SATIVA SUBSP. INDICA TOP
     Dosage: 7-8 JOINTS DAILY IN THE MORNING (CONSUMPTION PEAK AT 20 JOINTS DAILY)
  5. RIVOTRIL [Suspect]
     Active Substance: CLONAZEPAM
     Indication: Drug dependence
     Dosage: UNK
  6. CODEINE\HERBALS [Suspect]
     Active Substance: CODEINE\HERBALS
     Dosage: UNK
  7. SUBUTEX [Suspect]
     Active Substance: BUPRENORPHINE HYDROCHLORIDE
     Dosage: MISUSE OF SUBUTEX BY SMOKING OR SNORTING
     Route: 045
  8. SKENAN [Suspect]
     Active Substance: MORPHINE SULFATE
     Dosage: UNK

REACTIONS (3)
  - Drug dependence [Recovering/Resolving]
  - Sinusitis [Not Recovered/Not Resolved]
  - Intentional product misuse [Recovering/Resolving]
